FAERS Safety Report 6115082-9 (Version None)
Quarter: 2009Q1

REPORT INFORMATION
  Report Type: 
  Country: None (occurrence: None)
  Receive Date: 20090313
  Receipt Date: 20090309
  Transmission Date: 20090719
  Serious: Yes (Hospitalization)
  Sender: FDA-Public Use
  Company Number: B0564013A

PATIENT
  Age: 62 Year
  Sex: Male

DRUGS (22)
  1. AUGMENTIN '125' [Suspect]
     Indication: DRUG USE FOR UNKNOWN INDICATION
     Dosage: 3G PER DAY
     Route: 042
     Dates: start: 20081108, end: 20081115
  2. CEFTRIAXONE [Suspect]
     Indication: DRUG USE FOR UNKNOWN INDICATION
     Dosage: 1G PER DAY
     Route: 042
     Dates: start: 20081116, end: 20081128
  3. LARGACTIL [Suspect]
     Indication: DRUG USE FOR UNKNOWN INDICATION
     Dosage: 25MG PER DAY
     Route: 042
     Dates: start: 20081108, end: 20081127
  4. OLICLINOMEL [Suspect]
     Indication: DRUG USE FOR UNKNOWN INDICATION
     Route: 065
     Dates: start: 20081118, end: 20081128
  5. ACUPAN [Suspect]
     Indication: DRUG USE FOR UNKNOWN INDICATION
     Dosage: 60MG PER DAY
     Route: 042
     Dates: start: 20081112, end: 20081127
  6. PARACETAMOL [Concomitant]
     Indication: DRUG USE FOR UNKNOWN INDICATION
     Route: 048
     Dates: end: 20081128
  7. HYDROXINE [Concomitant]
     Route: 065
  8. INIPOMP [Concomitant]
     Route: 065
  9. MORPHINE [Concomitant]
     Route: 065
  10. BECILAN [Concomitant]
     Route: 065
  11. SOLU-MEDROL [Concomitant]
     Route: 065
  12. LOVENOX [Concomitant]
     Route: 065
  13. ATROVENT [Concomitant]
     Route: 065
  14. VENTOLIN [Concomitant]
     Route: 065
  15. GAVISCON [Concomitant]
     Route: 065
  16. EFFEXOR [Concomitant]
     Route: 065
  17. NICOBION [Concomitant]
     Route: 065
  18. SOLUPRED [Concomitant]
     Route: 065
  19. TARCEVA [Concomitant]
     Route: 065
  20. TOPLEXIL [Concomitant]
     Route: 065
  21. BRONCHODUAL [Concomitant]
     Route: 065
  22. TENORMIN [Concomitant]
     Route: 065

REACTIONS (4)
  - ASPARTATE AMINOTRANSFERASE INCREASED [None]
  - BLOOD PHOSPHORUS INCREASED [None]
  - GAMMA-GLUTAMYLTRANSFERASE INCREASED [None]
  - HEPATIC FUNCTION ABNORMAL [None]
